FAERS Safety Report 6667687-4 (Version None)
Quarter: 2010Q2

REPORT INFORMATION
  Report Type: 
  Country: None (occurrence: None)
  Receive Date: 20100405
  Receipt Date: 20100326
  Transmission Date: 20101027
  Serious: Yes (Death, Hospitalization)
  Sender: FDA-Public Use
  Company Number: GB-BRISTOL-MYERS SQUIBB COMPANY-15043599

PATIENT
  Age: 50 Year
  Sex: Male

DRUGS (9)
  1. EFAVIRENZ [Suspect]
     Indication: HIV INFECTION
     Dates: start: 20060701
  2. FENOFIBRATE [Suspect]
  3. ATENOLOL [Suspect]
  4. KIVEXA [Suspect]
     Indication: HIV INFECTION
     Route: 048
     Dates: start: 20060701
  5. TRUVADA [Suspect]
     Indication: HIV INFECTION
     Dates: start: 20090101
  6. ENALAPRIL MALEATE [Suspect]
  7. INTERFERON [Suspect]
  8. ROSUVASTATIN CALCIUM [Suspect]
  9. VENLAFAXINE HCL [Suspect]

REACTIONS (3)
  - RENAL FAILURE ACUTE [None]
  - SEPSIS [None]
  - SHIGELLA INFECTION [None]
